FAERS Safety Report 7903061-8 (Version None)
Quarter: 2011Q4

REPORT INFORMATION
  Report Type: 
  Country: None (occurrence: None)
  Receive Date: 20111104
  Receipt Date: 20111021
  Transmission Date: 20120403
  Serious: Yes (Other)
  Sender: FDA-Public Use
  Company Number: 2011AM004976

PATIENT
  Age: 72 Year
  Sex: Female

DRUGS (5)
  1. ANTIBIOTICS [Concomitant]
  2. SYMLIN [Suspect]
     Indication: TYPE 2 DIABETES MELLITUS
     Dosage: 180 MCG;TID;SC 60 MCG;TID;SC 120 MCG;TID;SC
     Route: 058
     Dates: start: 20110601
  3. SYMLIN [Suspect]
     Indication: TYPE 2 DIABETES MELLITUS
     Dosage: 180 MCG;TID;SC 60 MCG;TID;SC 120 MCG;TID;SC
     Route: 058
     Dates: end: 20110601
  4. SYMLIN [Suspect]
     Indication: TYPE 2 DIABETES MELLITUS
     Dosage: SC
     Route: 058
  5. HUMALOG [Concomitant]

REACTIONS (7)
  - RENAL NEOPLASM [None]
  - ARTHRALGIA [None]
  - HEPATIC NEOPLASM [None]
  - SINUS DISORDER [None]
  - BREAST CANCER [None]
  - OSTEONECROSIS [None]
  - VOMITING [None]
